FAERS Safety Report 8373374-7 (Version None)
Quarter: 2012Q2

REPORT INFORMATION
  Report Type: 
  Country: None (occurrence: None)
  Receive Date: 20120521
  Receipt Date: 20120511
  Transmission Date: 20120825
  Serious: Yes (Hospitalization)
  Sender: FDA-Public Use
  Company Number: JP-VERTEX PHARMACEUTICALS INC.-AE-2012-004844

PATIENT
  Age: 49 Year
  Sex: Male

DRUGS (16)
  1. PROMACTA [Concomitant]
     Route: 048
     Dates: start: 20120206
  2. AZULOXA [Concomitant]
     Route: 048
     Dates: start: 20120302
  3. PEG-INTRON [Concomitant]
     Indication: HEPATITIS C
     Route: 058
     Dates: start: 20120206
  4. REBETOL [Concomitant]
     Indication: HEPATITIS C
     Route: 048
     Dates: start: 20120206
  5. AZULOXA [Concomitant]
     Route: 048
     Dates: start: 20120216
  6. AZULOXA [Concomitant]
     Route: 048
     Dates: start: 20120426
  7. AZULOXA [Concomitant]
     Route: 048
     Dates: start: 20120227
  8. AZULOXA [Concomitant]
     Route: 048
     Dates: start: 20120323
  9. AZULOXA [Concomitant]
     Route: 048
     Dates: start: 20120405
  10. PREDNISOLONE [Concomitant]
     Route: 048
  11. AZULOXA [Concomitant]
     Route: 048
     Dates: start: 20120329
  12. TELAVIC (TELAPREVIR) [Suspect]
     Indication: HEPATITIS C
     Route: 048
     Dates: start: 20120206, end: 20120502
  13. FAMOGAST D [Concomitant]
     Route: 048
     Dates: start: 20120216
  14. AZULOXA [Concomitant]
     Route: 048
     Dates: start: 20120223
  15. AZULOXA [Concomitant]
     Route: 048
     Dates: start: 20120308
  16. EPINASTINE HYDROCHLORIDE [Concomitant]

REACTIONS (2)
  - DRUG ERUPTION [None]
  - ERYTHEMA [None]
